FAERS Safety Report 14669104 (Version 1)
Quarter: 2018Q1

REPORT INFORMATION
  Report Type: Spontaneous
  Country: FR (occurrence: FR)
  Receive Date: 20180322
  Receipt Date: 20180322
  Transmission Date: 20180509
  Serious: Yes (Life-Threatening, Hospitalization, Congenital Anomaly, Other)
  Sender: FDA-Public Use
  Company Number: FR-PFIZER INC-2018111588

PATIENT
  Sex: Female
  Weight: .72 kg

DRUGS (6)
  1. SERESTA [Concomitant]
     Active Substance: OXAZEPAM
     Dosage: UNK
     Route: 065
  2. VENLAFAXINE HCL [Suspect]
     Active Substance: VENLAFAXINE HYDROCHLORIDE
     Dosage: 75 MG, 1X/DAY
     Route: 064
     Dates: start: 20140601, end: 20150101
  3. ABILIFY [Suspect]
     Active Substance: ARIPIPRAZOLE
     Indication: SCHIZOPHRENIA
     Dosage: 30 MG, 1X/DAY
     Route: 064
     Dates: start: 20140601, end: 20150129
  4. EFFEXOR [Suspect]
     Active Substance: VENLAFAXINE HYDROCHLORIDE
     Dosage: 75 MG, 1X/DAY
     Route: 064
     Dates: start: 20140601, end: 20150101
  5. HALOPERIDOL. [Suspect]
     Active Substance: HALOPERIDOL
     Dosage: 1 DF, 1X/DAY
     Route: 064
     Dates: start: 20140601, end: 20150129
  6. HALDOL [Suspect]
     Active Substance: HALOPERIDOL
     Dosage: 1 DF, 1X/DAY
     Route: 064
     Dates: start: 20140601, end: 20150129

REACTIONS (9)
  - Pulmonary hypertension [Unknown]
  - Neonatal intestinal obstruction [Recovered/Resolved]
  - Deafness congenital [Unknown]
  - Premature baby [Unknown]
  - Foetal heart rate abnormal [Unknown]
  - Bronchopulmonary dysplasia [Unknown]
  - Low birth weight baby [Unknown]
  - Maternal exposure during pregnancy [Recovered/Resolved]
  - Foetal growth restriction [Unknown]

NARRATIVE: CASE EVENT DATE: 20150129
